FAERS Safety Report 9901394 (Version 2)
Quarter: 2014Q2

REPORT INFORMATION
  Report Type: Spontaneous
  Country: US (occurrence: US)
  Receive Date: 20140217
  Receipt Date: 20140626
  Transmission Date: 20141212
  Serious: Yes (Death, Hospitalization)
  Sender: FDA-Public Use
  Company Number: US-PFIZER INC-2014043167

PATIENT
  Age: 52 Year
  Sex: Male

DRUGS (3)
  1. INLYTA [Suspect]
     Indication: RENAL CANCER METASTATIC
     Dosage: 5 MG, 2X/DAY
     Dates: start: 20131226
  2. AFINITOR [Concomitant]
     Dosage: 5 MG, 1X/DAY
  3. NORVASC [Concomitant]
     Dosage: 5 MG, 1X/DAY

REACTIONS (12)
  - Death [Fatal]
  - Dyspnoea [Unknown]
  - Pleural effusion [Unknown]
  - Asthenia [Unknown]
  - Fatigue [Unknown]
  - Dysstasia [Unknown]
  - Decreased appetite [Unknown]
  - Decubitus ulcer [Unknown]
  - Weight decreased [Unknown]
  - Dysphagia [Unknown]
  - Disease progression [Unknown]
  - Renal cancer metastatic [Unknown]
